FAERS Safety Report 4728755-7 (Version None)
Quarter: 2005Q3

REPORT INFORMATION
  Report Type: 
  Country: None (occurrence: None)
  Receive Date: 20050729
  Receipt Date: 20050622
  Transmission Date: 20060218
  Serious: Yes (Other)
  Sender: FDA-Public Use
  Company Number: 2005JP001249

PATIENT
  Age: 55 Year
  Sex: Male

DRUGS (4)
  1. CEFAZOLIN [Suspect]
     Indication: PERINEPHRIC ABSCESS
     Dosage: 4G PER DAY
     Route: 042
     Dates: start: 20050502, end: 20050517
  2. SULTAMICILLIN TOSILATE [Concomitant]
     Dates: start: 20050425, end: 20050502
  3. NOVORAPID [Concomitant]
     Dates: start: 20050425
  4. LANTUS [Concomitant]
     Dates: start: 20050425

REACTIONS (1)
  - PANCYTOPENIA [None]
